FAERS Safety Report 20801386 (Version 5)
Quarter: 2022Q2

REPORT INFORMATION
  Report Type: Report from Study
  Country: DE (occurrence: DE)
  Receive Date: 20220509
  Receipt Date: 20220627
  Transmission Date: 20220721
  Serious: Yes (Life-Threatening, Hospitalization, Other)
  Sender: FDA-Public Use
  Company Number: DE-IPSEN Group, Research and Development-2021-15495

PATIENT
  Age: 64 Year
  Sex: Male
  Weight: 74 kg

DRUGS (19)
  1. CABOZANTINIB [Suspect]
     Active Substance: CABOZANTINIB
     Indication: Metastatic renal cell carcinoma
     Dosage: 60 MG, QD
     Dates: start: 20201030, end: 20201125
  2. CABOZANTINIB [Suspect]
     Active Substance: CABOZANTINIB
     Dosage: 40 MG, QD
     Dates: start: 20201202, end: 20201209
  3. CABOZANTINIB [Suspect]
     Active Substance: CABOZANTINIB
     Dosage: 60 MG, QD
     Dates: start: 20201211, end: 20210216
  4. CABOZANTINIB [Suspect]
     Active Substance: CABOZANTINIB
     Dosage: 60 MG, QD
     Dates: start: 20210224, end: 20210622
  5. CABOZANTINIB [Suspect]
     Active Substance: CABOZANTINIB
     Dosage: 60 MG, QD
     Dates: start: 20210804, end: 20211206
  6. CABOZANTINIB [Suspect]
     Active Substance: CABOZANTINIB
     Dosage: 60 MG, QD
     Dates: start: 20211217, end: 20220402
  7. RAMIPRIL [Concomitant]
     Active Substance: RAMIPRIL
     Indication: Hypertension
     Dosage: 5 MG, DAILY (ONGOING)
     Route: 048
     Dates: start: 2010
  8. BISOPROLOL [Concomitant]
     Active Substance: BISOPROLOL
     Indication: Hypertension
     Dosage: 5 MG, QD
     Route: 048
  9. AMLODIPINE BESYLATE [Concomitant]
     Active Substance: AMLODIPINE BESYLATE
     Indication: Hypertension
     Dosage: 5 MG, QD
     Route: 048
  10. METFORMIN [Concomitant]
     Active Substance: METFORMIN HYDROCHLORIDE
     Indication: Type 2 diabetes mellitus
     Dosage: 1000 MG TWICE PER DAY
     Route: 048
     Dates: end: 20210621
  11. METFORMIN [Concomitant]
     Active Substance: METFORMIN HYDROCHLORIDE
     Dosage: 1000 MG TWICE PER DAY
     Route: 048
     Dates: start: 20210622
  12. JARDIANCE [Concomitant]
     Active Substance: EMPAGLIFLOZIN
     Indication: Type 2 diabetes mellitus
     Dosage: 25 MG, QD
     Route: 048
  13. ZOMETA [Concomitant]
     Active Substance: ZOLEDRONIC ACID
     Indication: Metastases to bone
     Dosage: 4 MG, EVERY 4 WEEKS (ONGOING)
     Route: 042
     Dates: start: 20200624
  14. FRESUBIN [Concomitant]
     Active Substance: AMINO ACIDS\DEXTROSE\ELECTROLYTES NOS\SOYBEAN OIL\VITAMINS
     Indication: Nutritional supplementation
     Dosage: 200 MILLILITRE, TWICE PER DAY (ONGOING)
     Route: 048
     Dates: start: 20210407
  15. ENOXAPARIN SODIUM [Concomitant]
     Active Substance: ENOXAPARIN SODIUM
     Indication: Prophylaxis
     Dosage: 40 MG, QD
     Route: 058
     Dates: start: 20210622, end: 20210627
  16. ENOXAPARIN SODIUM [Concomitant]
     Active Substance: ENOXAPARIN SODIUM
     Dosage: 40 MG DAILY
     Route: 058
     Dates: start: 20210708, end: 20210720
  17. POLYETHYLENE GLYCOLS [Concomitant]
     Active Substance: POLYETHYLENE GLYCOLS
     Indication: Constipation prophylaxis
     Dosage: 13.7 GM, AS NEEDED
     Route: 048
     Dates: start: 20220419, end: 20220419
  18. FUROSEMIDE [Concomitant]
     Active Substance: FUROSEMIDE
     Indication: Dehydration
     Dosage: 20 MG, DAILY
     Route: 042
     Dates: start: 20220414, end: 20220417
  19. KALINOR BRAUS [POTASSIUM CHLORIDE] [Concomitant]
     Indication: Prophylaxis
     Dosage: 40 UMOL, QD
     Route: 048
     Dates: start: 20210716, end: 20210720

REACTIONS (6)
  - Cholangitis [Recovered/Resolved]
  - Sepsis [Recovered/Resolved]
  - Cholangitis [Recovered/Resolved]
  - Osteonecrosis of jaw [Recovered/Resolved]
  - Tooth infection [Recovered/Resolved]
  - Cholestasis [Recovered/Resolved]

NARRATIVE: CASE EVENT DATE: 20210611
